FAERS Safety Report 26010280 (Version 2)
Quarter: 2025Q4

REPORT INFORMATION
  Report Type: Spontaneous
  Country: US (occurrence: US)
  Receive Date: 20251107
  Receipt Date: 20251218
  Transmission Date: 20260118
  Serious: No
  Sender: CIPLA
  Company Number: US-CIPLA LTD.-2025US13779

PATIENT

DRUGS (3)
  1. ALBUTEROL [Suspect]
     Active Substance: ALBUTEROL
     Indication: Asthma
     Dosage: 180 MICROGRAM, PRN (REGULAR USE)(INHALE 2 PUFFS EVERY 4 TO 6 HOURS AS NEEDED BY MOUTH)
     Route: 065
  2. ALBUTEROL [Suspect]
     Active Substance: ALBUTEROL
     Indication: Chronic obstructive pulmonary disease
     Dosage: 180 MICROGRAM, PRN (INHALE 2 PUFFS EVERY 4 TO 6 HOURS AS NEEDED BY MOUTH)
     Dates: start: 2025, end: 2025
  3. ALBUTEROL [Suspect]
     Active Substance: ALBUTEROL
     Dosage: 180 MICROGRAM, PRN (INHALE 2 PUFFS EVERY 4 TO 6 HOURS AS NEEDED BY MOUTH) (REPLACEMENT INHALER)
     Dates: start: 2025

REACTIONS (2)
  - Drug dose omission by device [Unknown]
  - Device delivery system issue [Unknown]

NARRATIVE: CASE EVENT DATE: 20250101
